FAERS Safety Report 16014691 (Version 4)
Quarter: 2020Q1

REPORT INFORMATION
  Report Type: Spontaneous
  Country: US (occurrence: US)
  Receive Date: 20190227
  Receipt Date: 20200305
  Transmission Date: 20200409
  Serious: No
  Sender: FDA-Public Use
  Company Number: US-ACTELION-A-US2019-185966

PATIENT
  Sex: Female

DRUGS (1)
  1. OPSUMIT [Suspect]
     Active Substance: MACITENTAN
     Indication: PULMONARY ARTERIAL HYPERTENSION
     Dosage: 10 MG, QD
     Route: 048
     Dates: start: 20180628

REACTIONS (6)
  - Productive cough [Unknown]
  - Pain [Unknown]
  - Dyspnoea [Unknown]
  - Rheumatoid arthritis [Unknown]
  - Oral pain [Unknown]
  - Cyanosis [Unknown]
